FAERS Safety Report 4633080-9 (Version None)
Quarter: 2005Q2

REPORT INFORMATION
  Report Type: 
  Country: None (occurrence: None)
  Receive Date: 20050412
  Receipt Date: 20050303
  Transmission Date: 20051028
  Serious: Yes (Hospitalization)
  Sender: FDA-Public Use
  Company Number: GB-SANOFI-SYNTHELABO-F01200500359

PATIENT
  Sex: Female

DRUGS (6)
  1. OXALIPLATIN [Suspect]
     Indication: COLORECTAL CANCER METASTATIC
     Dosage: 230 MG PER Q3W
     Route: 042
     Dates: start: 20050110, end: 20050110
  2. CAPECITABINE [Suspect]
     Route: 048
     Dates: start: 20050110
  3. BEVACIZUMAB OR PLACEBO [Suspect]
     Route: 042
     Dates: start: 20050110, end: 20050110
  4. NOZINAN [Concomitant]
     Dosage: UNK
     Route: 065
     Dates: start: 20050216
  5. CODEINE PHOSPHATE [Concomitant]
     Dosage: UNK
     Route: 065
     Dates: start: 20050211
  6. IMODIUM [Concomitant]
     Dosage: UNK
     Route: 065
     Dates: start: 20050207

REACTIONS (9)
  - ASTHENIA [None]
  - DEHYDRATION [None]
  - DIARRHOEA [None]
  - DRUG INEFFECTIVE [None]
  - FATIGUE [None]
  - HYPOKALAEMIA [None]
  - NAUSEA [None]
  - PORTAL VEIN THROMBOSIS [None]
  - VOMITING [None]
